FAERS Safety Report 13384829 (Version 3)
Quarter: 2017Q2

REPORT INFORMATION
  Report Type: Spontaneous
  Country: US (occurrence: US)
  Receive Date: 20170329
  Receipt Date: 20170407
  Transmission Date: 20170830
  Serious: Yes (Hospitalization)
  Sender: FDA-Public Use
  Company Number: US-ACTELION-A-US2017-151724

PATIENT
  Age: 74 Year
  Sex: Female

DRUGS (19)
  1. VALCHLOR [Suspect]
     Active Substance: MECHLORETHAMINE
     Dosage: Q3DAYS
     Route: 061
     Dates: start: 20170123
  2. HYDROXYZINE [Concomitant]
     Active Substance: HYDROXYZINE HYDROCHLORIDE
     Dosage: Q4-6H
  3. ATIVAN [Concomitant]
     Active Substance: LORAZEPAM
  4. PIOGLITAZONE. [Concomitant]
     Active Substance: PIOGLITAZONE
  5. FOLIC ACID. [Concomitant]
     Active Substance: FOLIC ACID
  6. METHOXSALEN. [Concomitant]
     Active Substance: METHOXSALEN
  7. ALCLOMETASONE [Concomitant]
     Active Substance: ALCLOMETASONE
  8. CLOBETASOL [Concomitant]
     Active Substance: CLOBETASOL
  9. ZANTAC [Concomitant]
     Active Substance: RANITIDINE HYDROCHLORIDE
  10. ADVAIR HFA [Concomitant]
     Active Substance: FLUTICASONE PROPIONATE\SALMETEROL XINAFOATE
     Dosage: UNK, PRN
  11. DOXEPIN [Concomitant]
     Active Substance: DOXEPIN
     Dosage: UNK, Q6HRS
  12. FLUOCINONIDE. [Concomitant]
     Active Substance: FLUOCINONIDE
     Dosage: UNK, BID
  13. VALCHLOR [Suspect]
     Active Substance: MECHLORETHAMINE
     Indication: MYCOSIS FUNGOIDES
     Dosage: UNK, QD
     Route: 061
     Dates: start: 20160331
  14. DOXEPIN [Concomitant]
     Active Substance: DOXEPIN
     Dosage: UNK, QPM
  15. PREDNISONE. [Concomitant]
     Active Substance: PREDNISONE
  16. SPIRIVA [Concomitant]
     Active Substance: TIOTROPIUM BROMIDE MONOHYDRATE
     Dosage: UNK, PRN
  17. PROTONIX [Concomitant]
     Active Substance: PANTOPRAZOLE SODIUM
  18. ATORVASTATIN [Concomitant]
     Active Substance: ATORVASTATIN
     Dosage: UNK, QD
  19. TRAMADOL. [Concomitant]
     Active Substance: TRAMADOL
     Dosage: UNK, PRN

REACTIONS (8)
  - Pruritus [Recovering/Resolving]
  - Skin exfoliation [Recovering/Resolving]
  - Contrast media reaction [Recovering/Resolving]
  - Aortic aneurysm [Recovering/Resolving]
  - Dermatitis exfoliative [Recovering/Resolving]
  - Drug hypersensitivity [Recovering/Resolving]
  - Skin burning sensation [Recovering/Resolving]
  - Dermatitis atopic [Recovering/Resolving]

NARRATIVE: CASE EVENT DATE: 20170203
